FAERS Safety Report 5268306-4 (Version None)
Quarter: 2007Q1

REPORT INFORMATION
  Report Type: 
  Country: None (occurrence: None)
  Receive Date: 20070319
  Receipt Date: 20070316
  Transmission Date: 20070707
  Serious: Yes (Death, Hospitalization, Other)
  Sender: FDA-Public Use
  Company Number: DE-BRISTOL-MYERS SQUIBB COMPANY-13332960

PATIENT
  Age: 73 Year
  Sex: Male

DRUGS (11)
  1. CISPLATIN [Suspect]
     Indication: SMALL CELL LUNG CANCER STAGE UNSPECIFIED
     Route: 042
     Dates: start: 20060224, end: 20060224
  2. CISPLATIN [Suspect]
     Route: 042
     Dates: start: 20060130, end: 20060130
  3. ETOPOSIDE [Suspect]
     Indication: SMALL CELL LUNG CANCER STAGE UNSPECIFIED
     Route: 042
     Dates: start: 20060224, end: 20060226
  4. ETOPOSIDE [Suspect]
     Route: 042
     Dates: start: 20060130, end: 20060201
  5. PANTOPRAZOLE SODIUM [Concomitant]
     Dates: start: 20060111, end: 20060323
  6. MORPHINE SULFATE [Concomitant]
     Dates: start: 20060206
  7. ALPRAZOLAM [Concomitant]
     Dates: start: 20060206
  8. MEDAZEPAM [Concomitant]
     Dates: start: 20060306
  9. LISINOPRIL [Concomitant]
     Dates: start: 20060104, end: 20060323
  10. IBUPROFEN [Concomitant]
     Dates: start: 20060109, end: 20060207
  11. TORSEMIDE [Concomitant]
     Dates: start: 20060109, end: 20060311

REACTIONS (9)
  - APATHY [None]
  - CONFUSIONAL STATE [None]
  - DEPRESSION [None]
  - INCONTINENCE [None]
  - LEUKOPENIA [None]
  - NEPHROPATHY TOXIC [None]
  - PNEUMONIA [None]
  - SEPSIS [None]
  - WEIGHT DECREASED [None]
